FAERS Safety Report 6184145-4 (Version None)
Quarter: 2009Q2

REPORT INFORMATION
  Report Type: 
  Country: None (occurrence: None)
  Receive Date: 20090506
  Receipt Date: 20090506
  Transmission Date: 20091009
  Serious: Yes (Other)
  Sender: FDA-Public Use
  Company Number: None

PATIENT
  Age: 73 Year
  Sex: Male
  Weight: 77.1115 kg

DRUGS (1)
  1. SIMVASTATIN [Suspect]
     Indication: VASCULAR CALCIFICATION
     Dates: start: 20081217, end: 20090329

REACTIONS (2)
  - CHROMATURIA [None]
  - MYALGIA [None]
